FAERS Safety Report 20195456 (Version 4)
Quarter: 2022Q3

REPORT INFORMATION
  Report Type: Spontaneous
  Country: CA (occurrence: CA)
  Receive Date: 20211216
  Receipt Date: 20220810
  Transmission Date: 20221027
  Serious: Yes (Death, Other)
  Sender: FDA-Public Use
  Company Number: CA-ORPHANEU-2017007416

PATIENT
  Age: 33 Year
  Sex: Female

DRUGS (27)
  1. COSMEGEN [Suspect]
     Active Substance: DACTINOMYCIN
     Indication: Choriocarcinoma
     Dosage: UNK UNK, CYCLICAL
     Route: 042
  2. COSMEGEN [Suspect]
     Active Substance: DACTINOMYCIN
     Indication: Recurrent cancer
  3. COSMEGEN [Suspect]
     Active Substance: DACTINOMYCIN
     Indication: Metastases to skin
  4. COSMEGEN [Suspect]
     Active Substance: DACTINOMYCIN
     Indication: Metastases to lung
  5. COSMEGEN [Suspect]
     Active Substance: DACTINOMYCIN
     Indication: Metastases to central nervous system
  6. CISPLATIN [Suspect]
     Active Substance: CISPLATIN
     Indication: Choriocarcinoma
     Dosage: UNK UNK, CYCLICAL
     Route: 042
  7. CYCLOPHOSPHAMIDE [Suspect]
     Active Substance: CYCLOPHOSPHAMIDE
     Indication: Metastatic choriocarcinoma
     Dosage: 2000 MG/VIAL, CYCLICALLY
     Route: 042
  8. ETOPOSIDE [Suspect]
     Active Substance: ETOPOSIDE
     Indication: Choriocarcinoma
     Dosage: UNK UNK, CYCLICAL
     Route: 065
  9. ETOPOSIDE [Suspect]
     Active Substance: ETOPOSIDE
     Indication: Metastatic neoplasm
  10. GEMCITABINE [Suspect]
     Active Substance: GEMCITABINE
     Indication: Choriocarcinoma
     Dosage: UNK UNK, CYCLICAL
     Route: 065
  11. GEMCITABINE [Suspect]
     Active Substance: GEMCITABINE
     Indication: Recurrent cancer
  12. METHOTREXATE [Suspect]
     Active Substance: METHOTREXATE
     Indication: Choriocarcinoma
     Dosage: UNK UNK, CYCLICAL
     Route: 065
  13. DOXORUBICIN [Suspect]
     Active Substance: DOXORUBICIN
     Indication: Choriocarcinoma
     Dosage: 35 MILLIGRAM/SQ. METER, CYCLICAL, EVERY FOUR WEEKS
     Route: 065
  14. DOXORUBICIN [Suspect]
     Active Substance: DOXORUBICIN
     Indication: Recurrent cancer
  15. DOXORUBICIN [Suspect]
     Active Substance: DOXORUBICIN
     Indication: Metastases to skin
  16. DOXORUBICIN [Suspect]
     Active Substance: DOXORUBICIN
     Indication: Metastases to central nervous system
  17. DOXORUBICIN [Suspect]
     Active Substance: DOXORUBICIN
     Indication: Invasive ductal breast carcinoma
  18. TAXOL [Suspect]
     Active Substance: PACLITAXEL
     Indication: Choriocarcinoma
     Dosage: UNK UNK, UNK
     Route: 042
  19. VINCRISTINE SULFATE [Suspect]
     Active Substance: VINCRISTINE SULFATE
     Indication: Metastatic choriocarcinoma
     Dosage: UNK UNK, CYCLICAL
     Route: 065
  20. ADRIAMYCIN [Suspect]
     Active Substance: DOXORUBICIN HYDROCHLORIDE
     Indication: Invasive ductal breast carcinoma
     Dosage: 35 MILLIGRAM/SQ. METER, CYCLICAL
     Route: 042
  21. TAXOTERE [Suspect]
     Active Substance: DOCETAXEL
     Indication: Invasive ductal breast carcinoma
     Dosage: UNK UNK, UNK
     Route: 042
  22. TRASTUZUMAB [Suspect]
     Active Substance: TRASTUZUMAB
     Indication: Invasive ductal breast carcinoma
     Dosage: UNK UNK, UNK
     Route: 065
  23. DOXORUBICIN HYDROCHLORIDE [Suspect]
     Active Substance: DOXORUBICIN HYDROCHLORIDE
     Indication: Invasive ductal breast carcinoma
     Dosage: UNK UNK, UNK
     Route: 065
  24. PACLITAXEL [Suspect]
     Active Substance: PACLITAXEL
     Indication: Choriocarcinoma
     Dosage: UNK UNK, CYCLICAL
     Route: 042
  25. PACLITAXEL [Suspect]
     Active Substance: PACLITAXEL
     Dosage: UNK UNK, UNK
     Route: 041
  26. CYCLOPHOSPHAMIDE [Suspect]
     Active Substance: CYCLOPHOSPHAMIDE
     Indication: Choriocarcinoma
     Dosage: UNK UNK, UNK
     Route: 065
  27. DACTINOMYCIN [Suspect]
     Active Substance: DACTINOMYCIN
     Indication: Choriocarcinoma
     Dosage: UNK
     Route: 065

REACTIONS (4)
  - Acute myeloid leukaemia [Fatal]
  - Second primary malignancy [Fatal]
  - Product use in unapproved indication [Unknown]
  - Off label use [Unknown]
